FAERS Safety Report 9792186 (Version 2)
Quarter: 2014Q1

REPORT INFORMATION
  Report Type: Spontaneous
  Country: US (occurrence: US)
  Receive Date: 20140102
  Receipt Date: 20140102
  Transmission Date: 20141002
  Serious: No
  Sender: FDA-Public Use
  Company Number: US-BAXTER-2013BAX051341

PATIENT
  Age: 56 Year
  Sex: Female
  Weight: 70.5 kg

DRUGS (2)
  1. DIANEAL LOW CALCIUM [Suspect]
     Indication: PERITONEAL DIALYSIS
     Route: 033
     Dates: start: 20131019
  2. DIANEAL LOW CALCIUM [Suspect]
     Route: 033
     Dates: start: 20131019

REACTIONS (1)
  - Procedural pain [Recovered/Resolved]
